FAERS Safety Report 14860283 (Version 1)
Quarter: 2018Q2

REPORT INFORMATION
  Report Type: Spontaneous
  Country: US (occurrence: US)
  Receive Date: 20180508
  Receipt Date: 20180508
  Transmission Date: 20180711
  Serious: Yes (Hospitalization, Other)
  Sender: FDA-Public Use
  Company Number: US-ABBVIE-18P-163-2343067-00

PATIENT
  Age: 60 Year
  Sex: Female
  Weight: 54.48 kg

DRUGS (6)
  1. SYNTHROID [Suspect]
     Active Substance: LEVOTHYROXINE SODIUM
     Indication: HYPOTHYROIDISM
     Dosage: TAKE ONE TABLET DAILY ALONG WITH SYNTHROID 100MCG
     Route: 048
     Dates: end: 20171124
  2. OMEPRAZOLE. [Concomitant]
     Active Substance: OMEPRAZOLE
     Indication: GASTROOESOPHAGEAL REFLUX DISEASE
     Route: 065
  3. SYNTHROID [Suspect]
     Active Substance: LEVOTHYROXINE SODIUM
     Route: 048
     Dates: start: 20180115
  4. VITAMIN D [Concomitant]
     Active Substance: CHOLECALCIFEROL
     Indication: PRODUCT USED FOR UNKNOWN INDICATION
     Route: 065
  5. SYNTHROID [Suspect]
     Active Substance: LEVOTHYROXINE SODIUM
     Indication: HYPOTHYROIDISM
     Dosage: TAKE ONE TABLET DAILY WITH SYNTHOID 112 MCG
     Route: 048
     Dates: end: 20171124
  6. SYNTHROID [Suspect]
     Active Substance: LEVOTHYROXINE SODIUM
     Indication: HYPOTHYROIDISM
     Route: 048
     Dates: start: 20171124, end: 20180108

REACTIONS (9)
  - Gastric bypass [Recovered/Resolved]
  - Constipation [Recovering/Resolving]
  - Osteopenia [Not Recovered/Not Resolved]
  - Anxiety [Not Recovered/Not Resolved]
  - Glucose tolerance impaired [Recovered/Resolved]
  - Blood thyroid stimulating hormone decreased [Recovering/Resolving]
  - Weight decreased [Not Recovered/Not Resolved]
  - Drug level increased [Recovering/Resolving]
  - Insomnia [Not Recovered/Not Resolved]

NARRATIVE: CASE EVENT DATE: 2005
